FAERS Safety Report 24062143 (Version 1)
Quarter: 2024Q3

REPORT INFORMATION
  Report Type: Spontaneous
  Country: CZ (occurrence: CZ)
  Receive Date: 20240708
  Receipt Date: 20240708
  Transmission Date: 20241017
  Serious: Yes (Hospitalization, Other)
  Sender: MYLAN
  Company Number: CZ-SUN PHARMACEUTICAL INDUSTRIES LTD-2024R1-452419

PATIENT
  Age: 71 Year
  Sex: Male

DRUGS (8)
  1. VALACYCLOVIR HYDROCHLORIDE [Suspect]
     Active Substance: VALACYCLOVIR HYDROCHLORIDE
     Indication: Febrile neutropenia
     Dosage: UNK
     Route: 065
  2. DOXORUBICIN [Suspect]
     Active Substance: DOXORUBICIN
     Indication: Angioimmunoblastic T-cell lymphoma stage III
     Dosage: 50 MILLIGRAM/SQ. METER/D1/6 CYCLES
     Route: 065
  3. COTRIMOXAZOLE [Suspect]
     Active Substance: SULFAMETHOXAZOLE\TRIMETHOPRIM
     Indication: Febrile neutropenia
     Dosage: UNK
     Route: 065
  4. BRENTUXIMAB VEDOTIN [Suspect]
     Active Substance: BRENTUXIMAB VEDOTIN
     Indication: Angioimmunoblastic T-cell lymphoma stage III
     Dosage: 1.8 MILLIGRAM/KILOGRAM/ON DAY 1/6 CYCLES
     Route: 042
  5. CYCLOPHOSPHAMIDE [Suspect]
     Active Substance: CYCLOPHOSPHAMIDE
     Indication: Angioimmunoblastic T-cell lymphoma stage III
     Dosage: 750 MILLIGRAM/SQ. METER/ON DAY 1/6 CYCLES
     Route: 042
  6. FLUCONAZOLE [Suspect]
     Active Substance: FLUCONAZOLE
     Indication: Febrile neutropenia
     Dosage: UNK
     Route: 065
  7. PEGFILGRASTIM [Suspect]
     Active Substance: PEGFILGRASTIM
     Indication: Febrile neutropenia
     Dosage: UNK
     Route: 065
  8. PREDNISONE [Suspect]
     Active Substance: PREDNISONE
     Indication: Angioimmunoblastic T-cell lymphoma stage III
     Dosage: 100 MILLIGRAM/D1-5/6 CYCLES
     Route: 048

REACTIONS (2)
  - COVID-19 [Unknown]
  - Pneumonia [Unknown]
